FAERS Safety Report 4630927-7 (Version None)
Quarter: 2005Q2

REPORT INFORMATION
  Report Type: 
  Country: None (occurrence: None)
  Receive Date: 20050407
  Receipt Date: 20050407
  Transmission Date: 20051028
  Serious: Yes (Hospitalization)
  Sender: FDA-Public Use
  Company Number: None

PATIENT
  Age: 48 Year
  Sex: Female
  Weight: 165.5629 kg

DRUGS (1)
  1. ENALAPRIL [Suspect]
     Indication: HYPERTENSION
     Dosage: 20MG PO DAILY
     Route: 048
     Dates: start: 20031001, end: 20040101

REACTIONS (5)
  - FACE OEDEMA [None]
  - FATIGUE [None]
  - HEADACHE [None]
  - ULTRASOUND DOPPLER ABNORMAL [None]
  - ULTRASOUND KIDNEY ABNORMAL [None]
